FAERS Safety Report 6573804-7 (Version None)
Quarter: 2010Q1

REPORT INFORMATION
  Report Type: 
  Country: None (occurrence: None)
  Receive Date: 20100208
  Receipt Date: 20100203
  Transmission Date: 20100710
  Serious: Yes (Life-Threatening, Hospitalization, Disabling)
  Sender: FDA-Public Use
  Company Number: DE-MERCK-1001DEU00097

PATIENT
  Age: 50 Year
  Sex: Female

DRUGS (3)
  1. CANCIDAS [Suspect]
     Indication: RESPIRATORY MONILIASIS
     Route: 042
     Dates: start: 20100118, end: 20100125
  2. MOXIFLOXACIN HYDROCHLORIDE [Concomitant]
     Indication: PNEUMONIA
     Route: 065
     Dates: start: 20100114, end: 20100120
  3. BEVACIZUMAB [Concomitant]
     Indication: BRONCHIAL CARCINOMA
     Route: 042
     Dates: start: 20100106, end: 20100106

REACTIONS (2)
  - GASTROINTESTINAL ANASTOMOTIC LEAK [None]
  - LARGE INTESTINE PERFORATION [None]
